FAERS Safety Report 5282919-5 (Version None)
Quarter: 2007Q1

REPORT INFORMATION
  Report Type: 
  Country: None (occurrence: None)
  Receive Date: 20070328
  Receipt Date: 20070328
  Transmission Date: 20070707
  Serious: Yes (Other)
  Sender: FDA-Public Use
  Company Number: None

PATIENT
  Age: 69 Year
  Sex: Male
  Weight: 83.2 kg

DRUGS (2)
  1. COLESTID [Suspect]
  2. LEVALBUTEROL TART [Concomitant]

REACTIONS (1)
  - ABDOMINAL DISTENSION [None]
